FAERS Safety Report 5908439-X (Version None)
Quarter: 2008Q3

REPORT INFORMATION
  Report Type: 
  Country: None (occurrence: None)
  Receive Date: 20080930
  Receipt Date: 20080919
  Transmission Date: 20090109
  Serious: Yes (Death)
  Sender: FDA-Public Use
  Company Number: US024022

PATIENT
  Age: 39 Year
  Sex: Male

DRUGS (4)
  1. FENTORA [Suspect]
     Indication: PAIN
     Dosage: BUCCAL
     Route: 002
  2. DURAGESIC-100 [Suspect]
     Indication: PAIN
  3. PERCOCET [Concomitant]
  4. ACTIQ [Concomitant]

REACTIONS (10)
  - BRAIN OEDEMA [None]
  - DRUG PRESCRIBING ERROR [None]
  - DRUG TOXICITY [None]
  - HEPATIC CONGESTION [None]
  - LEFT VENTRICULAR HYPERTROPHY [None]
  - NERVOUS SYSTEM DISORDER [None]
  - PULMONARY CONGESTION [None]
  - PULMONARY OEDEMA [None]
  - SPLEEN CONGESTION [None]
  - TREATMENT NONCOMPLIANCE [None]
